FAERS Safety Report 8197637-3 (Version None)
Quarter: 2012Q1

REPORT INFORMATION
  Report Type: 
  Country: None (occurrence: None)
  Receive Date: 20120307
  Receipt Date: 20120224
  Transmission Date: 20120608
  Serious: Yes (Death, Other)
  Sender: FDA-Public Use
  Company Number: 2009AL004170

PATIENT
  Age: 86 Year
  Sex: Female

DRUGS (8)
  1. ATENOLOL [Concomitant]
  2. SULAR [Concomitant]
  3. VITAMIN TAB [Concomitant]
  4. ASPIRIN [Concomitant]
  5. GABAPENTIN [Concomitant]
  6. DETROL [Concomitant]
  7. NASONEX [Concomitant]
  8. DIGOXIN [Suspect]
     Indication: PRODUCT USED FOR UNKNOWN INDICATION
     Dosage: 0.129 MG;QD;PO
     Route: 048
     Dates: start: 20060619

REACTIONS (22)
  - ANHEDONIA [None]
  - PLEURAL EFFUSION [None]
  - MENTAL DISORDER [None]
  - ABDOMINAL PAIN [None]
  - CARDIOMEGALY [None]
  - UNEVALUABLE EVENT [None]
  - ECONOMIC PROBLEM [None]
  - MYOCARDIAL INFARCTION [None]
  - FATIGUE [None]
  - DIVERTICULUM [None]
  - OSTEOARTHRITIS [None]
  - HAEMORRHOIDS [None]
  - PAIN [None]
  - AORTIC ANEURYSM [None]
  - ARTERIOSCLEROSIS [None]
  - BLADDER IRRITATION [None]
  - EMOTIONAL DISORDER [None]
  - MULTIPLE INJURIES [None]
  - HYPERTENSION [None]
  - LUNG HYPERINFLATION [None]
  - ATELECTASIS [None]
  - HEPATIC CYST [None]
